FAERS Safety Report 17552669 (Version 4)
Quarter: 2025Q3

REPORT INFORMATION
  Report Type: Spontaneous
  Country: US (occurrence: US)
  Receive Date: 20200317
  Receipt Date: 20250926
  Transmission Date: 20251020
  Serious: No
  Sender: MYLAN
  Company Number: US-PFIZER INC-2020115546

PATIENT
  Age: 56 Year
  Sex: Female
  Weight: 68.95 kg

DRUGS (7)
  1. PREGABALIN [Suspect]
     Active Substance: PREGABALIN
     Indication: Trigeminal neuralgia
     Dosage: 150 MILLIGRAM, BID
     Dates: start: 2012
  2. PREGABALIN [Suspect]
     Active Substance: PREGABALIN
     Dosage: 150 MILLIGRAM, BID
     Dates: end: 20200309
  3. LYRICA [Suspect]
     Active Substance: PREGABALIN
     Indication: Trigeminal neuralgia
     Dosage: 150 MILLIGRAM, BID (TWICE A DAY)
     Dates: start: 2025, end: 20250912
  4. TRILEPTAL [Concomitant]
     Active Substance: OXCARBAZEPINE
     Indication: Product used for unknown indication
     Dosage: 150 MILLIGRAM, TID
  5. LOSARTAN [Concomitant]
     Active Substance: LOSARTAN
  6. DICLOFENAC [Concomitant]
     Active Substance: DICLOFENAC
  7. ZETIA [Concomitant]
     Active Substance: EZETIMIBE

REACTIONS (14)
  - Skin irritation [Recovering/Resolving]
  - Stomatitis [Recovering/Resolving]
  - Cheilitis [Recovering/Resolving]
  - Oral discomfort [Recovering/Resolving]
  - Mouth swelling [Recovering/Resolving]
  - Lip swelling [Unknown]
  - Feeling abnormal [Recovering/Resolving]
  - Lip pain [Unknown]
  - Lip blister [Unknown]
  - Chapped lips [Unknown]
  - Urticaria [Recovering/Resolving]
  - Speech disorder [Unknown]
  - Product substitution issue [Unknown]
  - Off label use [Unknown]

NARRATIVE: CASE EVENT DATE: 20200228
